FAERS Safety Report 7903710-4 (Version None)
Quarter: 2011Q4

REPORT INFORMATION
  Report Type: 
  Country: None (occurrence: None)
  Receive Date: 20111109
  Receipt Date: 20111108
  Transmission Date: 20120403
  Serious: Yes (Other)
  Sender: FDA-Public Use
  Company Number: AT-ROCHE-1010227

PATIENT
  Age: 87 Year
  Sex: Female
  Weight: 45 kg

DRUGS (1)
  1. ROCEPHIN [Suspect]
     Indication: PNEUMONIA
     Route: 042
     Dates: start: 20111007, end: 20111017

REACTIONS (2)
  - TRANSAMINASES INCREASED [None]
  - CHOLESTASIS [None]
